FAERS Safety Report 12843984 (Version 2)
Quarter: 2016Q4

REPORT INFORMATION
  Report Type: Spontaneous
  Country: US (occurrence: US)
  Receive Date: 20161013
  Receipt Date: 20161116
  Transmission Date: 20170207
  Serious: Yes (Hospitalization, Other)
  Sender: FDA-Public Use
  Company Number: US-AMGEN-USASP2016138837

PATIENT
  Age: 86 Year
  Sex: Female
  Weight: 62.13 kg

DRUGS (6)
  1. BONIVA [Suspect]
     Active Substance: IBANDRONATE SODIUM
     Indication: OSTEOPOROSIS
     Dosage: 150 MG, QMO
     Route: 065
     Dates: start: 1995, end: 20151027
  2. HYDROCHLOROTHIAZIDE. [Concomitant]
     Active Substance: HYDROCHLOROTHIAZIDE
  3. PRAVASTATIN. [Concomitant]
     Active Substance: PRAVASTATIN
  4. HYDRALAZINE [Concomitant]
     Active Substance: HYDRALAZINE HYDROCHLORIDE
  5. METOPROLOL. [Concomitant]
     Active Substance: METOPROLOL
  6. PROLIA [Suspect]
     Active Substance: DENOSUMAB
     Indication: OSTEOPOROSIS POSTMENOPAUSAL
     Dosage: 60 MG, Q6MO
     Route: 058
     Dates: start: 20151028, end: 20160831

REACTIONS (3)
  - Femur fracture [Not Recovered/Not Resolved]
  - Hip fracture [Recovered/Resolved]
  - Pain in extremity [Unknown]

NARRATIVE: CASE EVENT DATE: 20160828
